FAERS Safety Report 14691032 (Version 1)
Quarter: 2018Q1

REPORT INFORMATION
  Report Type: Spontaneous
  Country: US (occurrence: US)
  Receive Date: 20180328
  Receipt Date: 20180328
  Transmission Date: 20180509
  Serious: Yes (Other)
  Sender: FDA-Public Use
  Company Number: US-GE HEALTHCARE LIFE SCIENCES-2018CSU001134

PATIENT
  Age: 29 Year

DRUGS (2)
  1. GADOLINIUM (UNSPECIFIED) [Suspect]
     Active Substance: GADOLINIUM
     Dosage: UNK, SINGLE
     Route: 065
     Dates: start: 2006, end: 2006
  2. GADOLINIUM (UNSPECIFIED) [Suspect]
     Active Substance: GADOLINIUM
     Indication: FUNGAL INFECTION
     Dosage: UNK, SINGLE
     Route: 065
     Dates: start: 2006, end: 2006

REACTIONS (1)
  - Contrast media deposition [Not Recovered/Not Resolved]

NARRATIVE: CASE EVENT DATE: 2006
